FAERS Safety Report 6408555-2 (Version None)
Quarter: 2009Q4

REPORT INFORMATION
  Report Type: 
  Country: None (occurrence: None)
  Receive Date: 20091021
  Receipt Date: 20091014
  Transmission Date: 20100525
  Serious: Yes (Other)
  Sender: FDA-Public Use
  Company Number: US-BAYER-200931739NA

PATIENT
  Age: 73 Year
  Sex: Male

DRUGS (7)
  1. NEXAVAR [Suspect]
     Indication: HEPATIC NEOPLASM MALIGNANT
     Dosage: TOTAL DAILY DOSE: 800 MG  UNIT DOSE: 200 MG
     Route: 048
     Dates: start: 20090801
  2. NEXAVAR [Suspect]
     Route: 048
     Dates: start: 20081013
  3. METOPROLOL TARTRATE [Concomitant]
     Dosage: TOTAL DAILY DOSE: 100 MG
     Dates: start: 20090903
  4. METOPROLOL TARTRATE [Concomitant]
  5. LISINOPRIL [Concomitant]
     Dosage: TOTAL DAILY DOSE: 80 MG
  6. NORVASC [Concomitant]
     Dosage: TOTAL DAILY DOSE: 10 MG
  7. TOPROL-XL [Concomitant]
     Dosage: TOTAL DAILY DOSE: 100 MG

REACTIONS (6)
  - BLOOD POTASSIUM INCREASED [None]
  - BLOOD PRESSURE INCREASED [None]
  - DYSPNOEA [None]
  - HEART RATE INCREASED [None]
  - OEDEMA PERIPHERAL [None]
  - TESTICULAR SWELLING [None]
